FAERS Safety Report 4411293-9 (Version None)
Quarter: 2004Q3

REPORT INFORMATION
  Report Type: 
  Country: None (occurrence: None)
  Receive Date: 20040727
  Receipt Date: 20040715
  Transmission Date: 20050211
  Serious: Yes (Hospitalization)
  Sender: FDA-Public Use
  Company Number: 2004048518

PATIENT
  Age: 3 Year
  Sex: 0

DRUGS (1)
  1. ZITHROMAX [Suspect]
     Indication: ILL-DEFINED DISORDER
     Dosage: 5.5 ML (5.5 ML, 1 IN 1 D), ORAL
     Route: 048

REACTIONS (2)
  - BRONCHOPNEUMONIA [None]
  - VOMITING [None]
